FAERS Safety Report 22285956 (Version 1)
Quarter: 2023Q2

REPORT INFORMATION
  Report Type: Spontaneous
  Country: CA (occurrence: CA)
  Receive Date: 20230505
  Receipt Date: 20230505
  Transmission Date: 20230722
  Serious: Yes (Hospitalization, Other)
  Sender: FDA-Public Use
  Company Number: CA-AUROBINDO-AUR-APL-2022-042967

PATIENT
  Age: 79 Year
  Sex: Female

DRUGS (9)
  1. PIPERACILLIN AND TAZOBACTAM [Suspect]
     Active Substance: PIPERACILLIN SODIUM\TAZOBACTAM SODIUM
     Indication: Osteomyelitis
     Dosage: UNK
     Route: 065
  2. VANCOMYCIN HYDROCHLORIDE [Suspect]
     Active Substance: VANCOMYCIN HYDROCHLORIDE
     Indication: Osteomyelitis
     Dosage: UNK
     Route: 065
  3. SEVELAMER [Suspect]
     Active Substance: SEVELAMER
     Indication: End stage renal disease
     Dosage: UNK
     Route: 065
  4. WARFARIN [Suspect]
     Active Substance: WARFARIN
     Indication: Atrial fibrillation
     Dosage: UNK
     Route: 065
  5. CEFAZOLIN [Concomitant]
     Active Substance: CEFAZOLIN
     Indication: Cellulitis
     Dosage: UNK
     Route: 065
  6. CIPROFLOXACIN [Concomitant]
     Active Substance: CIPROFLOXACIN
     Indication: Cellulitis
     Dosage: UNK
     Route: 065
  7. SODIUM CHLORIDE [Concomitant]
     Active Substance: SODIUM CHLORIDE
     Indication: Hypotension
     Dosage: UNK
     Route: 042
  8. SODIUM CHLORIDE [Concomitant]
     Active Substance: SODIUM CHLORIDE
     Indication: Somnolence
  9. VITAMIN K [Concomitant]
     Active Substance: PHYTONADIONE
     Indication: Coagulopathy
     Dosage: 10 MILLIGRAM
     Route: 042

REACTIONS (3)
  - Coagulopathy [Unknown]
  - Oesophagitis [Unknown]
  - Drug ineffective [Unknown]
